FAERS Safety Report 4454675-1 (Version None)
Quarter: 2004Q3

REPORT INFORMATION
  Report Type: 
  Country: None (occurrence: None)
  Receive Date: 20040920
  Receipt Date: 20040920
  Transmission Date: 20050211
  Serious: Yes (Other)
  Sender: FDA-Public Use
  Company Number: None

PATIENT
  Sex: Female
  Weight: 61.2356 kg

DRUGS (1)
  1. EFFEXOR [Suspect]
     Indication: DEPRESSION
     Dosage: 75 MG ONCE A DAY ORAL
     Route: 048

REACTIONS (2)
  - DRUG EFFECT DECREASED [None]
  - DRUG WITHDRAWAL SYNDROME [None]
